FAERS Safety Report 5447501-5 (Version None)
Quarter: 2007Q3

REPORT INFORMATION
  Report Type: 
  Country: None (occurrence: None)
  Receive Date: 20070910
  Receipt Date: 20070905
  Transmission Date: 20080115
  Serious: Yes (Other)
  Sender: FDA-Public Use
  Company Number: B0483444A

PATIENT
  Age: 37 Year
  Sex: Male
  Weight: 90 kg

DRUGS (1)
  1. ZEFIX [Suspect]
     Indication: HEPATITIS B
     Route: 048
     Dates: start: 20070701, end: 20070816

REACTIONS (10)
  - ANAEMIA [None]
  - HAEMATOCRIT DECREASED [None]
  - HAEMOGLOBIN DECREASED [None]
  - INTERNATIONAL NORMALISED RATIO INCREASED [None]
  - MONOCYTE COUNT INCREASED [None]
  - PLATELET COUNT DECREASED [None]
  - PROTHROMBIN LEVEL DECREASED [None]
  - PROTHROMBIN TIME PROLONGED [None]
  - PROTHROMBIN TIME RATIO INCREASED [None]
  - RED BLOOD CELL COUNT DECREASED [None]
